FAERS Safety Report 9417683 (Version 1)
Quarter: 2013Q3

REPORT INFORMATION
  Report Type: Spontaneous
  Country: US (occurrence: None)
  Receive Date: 20130722
  Receipt Date: 20130722
  Transmission Date: 20140515
  Serious: Yes (Life-Threatening, Hospitalization, Disabling, Other)
  Sender: FDA-Public Use
  Company Number: None

PATIENT
  Age: 42 None
  Sex: Male

DRUGS (13)
  1. CIMZIA [Suspect]
     Indication: CROHN^S DISEASE
     Dosage: 2 X 200 MG/ML SYRINGES
     Dates: start: 20081201, end: 20130418
  2. MORPHINE [Concomitant]
  3. BUTRANS [Concomitant]
  4. METHOTREXATE [Concomitant]
  5. LEXAPRO [Concomitant]
  6. LISINOPRIL [Concomitant]
  7. TORDOL [Concomitant]
  8. ZOFRAN [Concomitant]
  9. COMPAZINE [Concomitant]
  10. PROMETHAZINE [Concomitant]
  11. VITAMIN D3 [Concomitant]
  12. BENEDRYL [Concomitant]
  13. TYLENOL [Concomitant]

REACTIONS (11)
  - Lymphadenopathy [None]
  - Abdominal pain upper [None]
  - Diarrhoea [None]
  - Joint swelling [None]
  - Arthralgia [None]
  - Nephrolithiasis [None]
  - Neuralgia [None]
  - Hypoaesthesia [None]
  - Paraesthesia [None]
  - Renal impairment [None]
  - Renal failure [None]
